FAERS Safety Report 14708232 (Version 7)
Quarter: 2018Q3

REPORT INFORMATION
  Report Type: Spontaneous
  Country: JP (occurrence: JP)
  Receive Date: 20180403
  Receipt Date: 20180820
  Transmission Date: 20181010
  Serious: Yes (Hospitalization)
  Sender: FDA-Public Use
  Company Number: JP-JT-EVA201800770KERYXP-001

PATIENT
  Age: 66 Year
  Sex: Male
  Weight: 76 kg

DRUGS (19)
  1. CARVEDILOL. [Suspect]
     Active Substance: CARVEDILOL
     Indication: HYPERTENSION
     Dosage: 10 MG, QD
     Route: 048
     Dates: end: 20180417
  2. FOSRENOL [Concomitant]
     Active Substance: LANTHANUM CARBONATE
     Indication: HYPERPHOSPHATAEMIA
     Dosage: 750 MG, TID
     Route: 048
     Dates: start: 20180322, end: 20180417
  3. CRESTOR [Concomitant]
     Active Substance: ROSUVASTATIN CALCIUM
     Indication: DYSLIPIDAEMIA
     Dosage: 5 MG, QD
     Route: 048
     Dates: end: 20180417
  4. INVESTIGATIONAL DRUG [Suspect]
     Active Substance: INVESTIGATIONAL PRODUCT
     Indication: NEPHROGENIC ANAEMIA
     Dosage: 4 MG, QD
     Route: 048
     Dates: start: 20180213, end: 20180323
  5. CLOPIDOGREL [Concomitant]
     Active Substance: CLOPIDOGREL BISULFATE
     Indication: THROMBOSIS PROPHYLAXIS
     Dosage: 75 MG, QD
     Route: 048
     Dates: start: 20180330, end: 20180417
  6. ROCALTROL [Concomitant]
     Active Substance: CALCITRIOL
     Indication: SECONDARY HYPERTHYROIDISM
     Dosage: 0.5 MICRO?G, QD
     Route: 048
     Dates: start: 20180223, end: 20180417
  7. AMLODIPINE [Suspect]
     Active Substance: AMLODIPINE BESYLATE
     Indication: HYPERTENSION
     Dosage: 2.5 MG, QD
     Route: 048
     Dates: start: 20180404, end: 20180417
  8. RABEPRAZOLE NA [Concomitant]
     Active Substance: RABEPRAZOLE SODIUM
     Indication: GASTROOESOPHAGEAL REFLUX DISEASE
     Dosage: 10 MG, QD
     Route: 048
     Dates: end: 20180417
  9. LOXONIN [Concomitant]
     Active Substance: LOXOPROFEN SODIUM
     Indication: BACK PAIN
     Dosage: UNK
     Route: 062
  10. HEPAFILLED [Concomitant]
     Indication: THROMBOSIS PROPHYLAXIS
     Dosage: 4000 IU, 3 TIMES/WK
     Route: 042
     Dates: start: 20180331, end: 20180522
  11. RIONA [Suspect]
     Active Substance: FERRIC CITRATE ANHYDROUS
     Indication: HYPERPHOSPHATAEMIA
     Dosage: 500 MG, TID
     Route: 048
     Dates: end: 20180417
  12. NIFEDIPINE L [Suspect]
     Active Substance: NIFEDIPINE
     Indication: HYPERTENSION
     Dosage: 10 MG, QD
     Route: 048
     Dates: start: 20180417, end: 20180417
  13. NESP [Concomitant]
     Active Substance: DARBEPOETIN ALFA
     Indication: NEPHROGENIC ANAEMIA
     Dosage: 10 MICRO?G, QWK
     Route: 042
     Dates: start: 20180331
  14. PL [Concomitant]
     Active Substance: ACETAMINOPHEN\CAFFEINE\PROMETHAZINE\SALICYLAMIDE
     Indication: NASOPHARYNGITIS
     Dosage: 1 G, BID
     Route: 048
     Dates: start: 20180417, end: 20180417
  15. PRECIPITATED CALCIUM CARBONATE [Concomitant]
     Active Substance: CALCIUM CARBONATE
     Indication: HYPERPHOSPHATAEMIA
     Dosage: 2000 MG, TID
     Route: 048
     Dates: end: 20180418
  16. KAYEXALATE [Concomitant]
     Active Substance: SODIUM POLYSTYRENE SULFONATE
     Indication: HYPERKALAEMIA
     Dosage: 2.5 G, TID
     Route: 048
  17. KIKLIN [Concomitant]
     Active Substance: BIXALOMER
     Indication: HYPERPHOSPHATAEMIA
     Dosage: 1000 MG, TID
     Route: 048
     Dates: end: 20180417
  18. HEPARINOID [Concomitant]
     Active Substance: CHONDROITIN SULFATE (BOVINE)
     Indication: PRURITUS
     Dosage: 2.5 MG, QD
     Route: 003
  19. MICAMLO [Suspect]
     Active Substance: AMLODIPINE BESYLATE\TELMISARTAN
     Indication: HYPERTENSION
     Dosage: 1 DF, QD
     Route: 048
     Dates: start: 20180315, end: 20180403

REACTIONS (2)
  - Cerebral infarction [Recovering/Resolving]
  - Brain stem infarction [Recovered/Resolved]

NARRATIVE: CASE EVENT DATE: 20180323
